FAERS Safety Report 8553828 (Version 5)
Quarter: 2012Q4

REPORT INFORMATION
  Report Type: Report from Study
  Country: RO (occurrence: RO)
  Receive Date: 20120509
  Receipt Date: 20121031
  Transmission Date: 20130627
  Serious: Yes (Death, Hospitalization, Other)
  Sender: FDA-Public Use
  Company Number: RO-ROCHE-1064872

PATIENT
  Age: 59 Year
  Sex: Male
  Weight: 55 kg

DRUGS (10)
  1. RITUXIMAB [Suspect]
     Indication: MANTLE CELL LYMPHOMA
     Dosage: AT 28 DAYS PERIOD
     Route: 042
     Dates: start: 20111228, end: 20120424
  2. FLUDARABINE [Suspect]
     Indication: MANTLE CELL LYMPHOMA
     Dosage: at 28 days period.
     Route: 042
     Dates: start: 20111228, end: 20120426
  3. ACID FOLIC [Concomitant]
     Indication: MANTLE CELL LYMPHOMA
     Route: 065
     Dates: start: 201110
  4. VITAMIN B6 [Concomitant]
     Indication: MANTLE CELL LYMPHOMA
     Route: 065
     Dates: start: 201110, end: 20120429
  5. MILURIT [Concomitant]
     Indication: MANTLE CELL LYMPHOMA
     Route: 065
     Dates: start: 20111228
  6. BISEPTOL [Concomitant]
     Indication: MANTLE CELL LYMPHOMA
     Route: 065
     Dates: start: 201201, end: 20120425
  7. ACYCLOVIR [Concomitant]
     Indication: MANTLE CELL LYMPHOMA
     Route: 065
     Dates: start: 201201
  8. ARGININ [Concomitant]
     Indication: MANTLE CELL LYMPHOMA
     Route: 065
     Dates: start: 20120403
  9. URSOFALK [Concomitant]
     Indication: MANTLE CELL LYMPHOMA
     Route: 065
     Dates: start: 20120225
  10. LAGOSA [Concomitant]
     Route: 065
     Dates: start: 20120403

REACTIONS (3)
  - Febrile neutropenia [Fatal]
  - Sepsis [Fatal]
  - Neutropenia [Recovered/Resolved]
